FAERS Safety Report 6194205-X (Version None)
Quarter: 2009Q2

REPORT INFORMATION
  Report Type: 
  Country: None (occurrence: None)
  Receive Date: 20090518
  Receipt Date: 20090506
  Transmission Date: 20091009
  Serious: Yes (Other)
  Sender: FDA-Public Use
  Company Number: AU-ELI_LILLY_AND_COMPANY-AU200905001111

PATIENT
  Sex: Male

DRUGS (1)
  1. HUMATROPE [Suspect]
     Dosage: 4 MG, WEEKLY (1/W)
     Dates: start: 20080401, end: 20090429

REACTIONS (2)
  - BRAIN NEOPLASM [None]
  - VISUAL IMPAIRMENT [None]
